FAERS Safety Report 13777934 (Version 1)
Quarter: 2017Q3

REPORT INFORMATION
  Report Type: Spontaneous
  Country: FR (occurrence: FR)
  Receive Date: 20170721
  Receipt Date: 20170721
  Transmission Date: 20171127
  Serious: Yes (Hospitalization, Other)
  Sender: FDA-Public Use
  Company Number: FR-009507513-1707FRA007193

PATIENT
  Age: 58 Year
  Sex: Female

DRUGS (2)
  1. BIPRETERAX (INDAPAMIDE (+) PERINDOPRIL ERBUMINE) 5 MG [Suspect]
     Active Substance: INDAPAMIDE\PERINDOPRIL
     Indication: HYPERTENSION
     Dosage: 1 DF, QD
     Route: 048
     Dates: end: 20170617
  2. VELMETIA [Suspect]
     Active Substance: METFORMIN\SITAGLIPTIN
     Indication: TYPE 2 DIABETES MELLITUS
     Dosage: 1 DF, BID
     Route: 048
     Dates: start: 201702, end: 20170617

REACTIONS (6)
  - Vertigo [Unknown]
  - Hypokalaemia [Recovering/Resolving]
  - Constipation [Unknown]
  - Headache [Unknown]
  - Vomiting [Recovered/Resolved]
  - Nausea [Recovered/Resolved]

NARRATIVE: CASE EVENT DATE: 2017
